FAERS Safety Report 16897367 (Version 1)
Quarter: 2019Q4

REPORT INFORMATION
  Report Type: Spontaneous
  Country: US (occurrence: US)
  Receive Date: 20191009
  Receipt Date: 20191009
  Transmission Date: 20200122
  Serious: No
  Sender: FDA-Public Use
  Company Number: US-PRINSTON PHARMACEUTICAL INC.-2018PRN01634

PATIENT
  Age: 37 Year
  Sex: Female
  Weight: 50.16 kg

DRUGS (10)
  1. ESCITALOPRAM [Suspect]
     Active Substance: ESCITALOPRAM OXALATE
     Indication: DEPRESSION
     Dosage: 10 MG, 1X/DAY
     Route: 048
     Dates: start: 20181116, end: 20181215
  2. ESCITALOPRAM [Suspect]
     Active Substance: ESCITALOPRAM OXALATE
     Dosage: 5 MG, 1X/DAY
     Route: 048
     Dates: start: 20181216
  3. ESCITALOPRAM [Suspect]
     Active Substance: ESCITALOPRAM OXALATE
     Indication: OBSESSIVE-COMPULSIVE DISORDER
     Dosage: 5 MG, 1X/DAY
     Route: 048
     Dates: start: 20181109, end: 20181115
  4. DOTERRA TERRAZYME [Concomitant]
  5. PURE ENCAPSULATIONS LIVER AND GI DETOX [Concomitant]
  6. PURE ENCAPSULATIONS MULTIVITAMIN [Concomitant]
  7. BROCCO PROTECT [Concomitant]
  8. DOTERRA XEOMEGA [Concomitant]
  9. BIOBOTANICAL RESEARCH INC GI DETOX [Concomitant]
  10. UNSPECIFIED VARIOUS ESSENTAIL OILS [Concomitant]

REACTIONS (10)
  - Cognitive disorder [Recovering/Resolving]
  - Unevaluable event [Recovering/Resolving]
  - Feeling abnormal [Recovered/Resolved]
  - Exposure to fungus [Recovered/Resolved]
  - Abdominal pain [Recovered/Resolved]
  - Fatigue [Recovered/Resolved]
  - Dizziness [Recovered/Resolved]
  - Tremor [Recovered/Resolved]
  - Reaction to excipient [Unknown]
  - Abdominal discomfort [Recovered/Resolved]

NARRATIVE: CASE EVENT DATE: 201811
